FAERS Safety Report 10007539 (Version 2)
Quarter: 2014Q1

REPORT INFORMATION
  Report Type: Spontaneous
  Country: DE (occurrence: SE)
  Receive Date: 20140313
  Receipt Date: 20140313
  Transmission Date: 20141002
  Serious: Yes (Hospitalization)
  Sender: FDA-Public Use
  Company Number: SE-FRI-1000052751

PATIENT
  Age: 84 Year
  Sex: Female

DRUGS (6)
  1. MEMANTINE [Suspect]
  2. MEMANTINE [Suspect]
     Dates: start: 20131113, end: 20131212
  3. D-VITAMIN OLJA ACO [Concomitant]
     Dosage: 5 GTT
     Route: 048
  4. LEKOVIT CA [Concomitant]
     Dosage: 500 MG/400 IE
     Route: 048
  5. TROMBYL [Concomitant]
  6. DUROFERON [Concomitant]

REACTIONS (4)
  - Diarrhoea [Unknown]
  - Nausea [Unknown]
  - Abdominal pain [Unknown]
  - Vomiting [Unknown]
